FAERS Safety Report 4930957-1 (Version None)
Quarter: 2006Q1

REPORT INFORMATION
  Report Type: 
  Country: None (occurrence: None)
  Receive Date: 20060227
  Receipt Date: 20060213
  Transmission Date: 20060701
  Serious: Yes (Disabling)
  Sender: FDA-Public Use
  Company Number: 222151

PATIENT
  Age: 85 Year
  Sex: Male

DRUGS (5)
  1. MABTHERA(RITUXIMAB) CONC FOR SOLUTION FOR INFUSION [Suspect]
     Indication: NON-HODGKIN'S LYMPHOMA
     Dates: start: 20050203
  2. CYCLOPHOSPHAMIDE (CYCLOPHOSPAHAMIDE) [Suspect]
     Indication: NON-HODGKIN'S LYMPHOMA
     Dates: start: 20050203
  3. EPIRUBICIN [Suspect]
     Indication: NON-HODGKIN'S LYMPHOMA
     Dates: start: 20050203
  4. VINCRISTINE [Suspect]
     Indication: NON-HODGKIN'S LYMPHOMA
     Dates: start: 20050203
  5. PREDNISONE TAB [Suspect]
     Indication: NON-HODGKIN'S LYMPHOMA
     Dates: start: 20050203

REACTIONS (2)
  - FALL [None]
  - ORTHOSTATIC HYPOTENSION [None]
